FAERS Safety Report 6473566 (Version 17)
Quarter: 2013Q1

REPORT INFORMATION
  Report Type: Spontaneous
  Country: US (occurrence: US)
  Receive Date: 20071121
  Receipt Date: 20130102
  Transmission Date: 20140127
  Serious: Yes (Hospitalization, Congenital Anomaly, Other)
  Sender: FDA-Public Use
  Company Number: US-PFIZER INC-2007095293

PATIENT
  Sex: Female
  Weight: 3 kg

DRUGS (11)
  1. ZOLOFT [Suspect]
     Dosage: 150 MG, 1X/DAY
     Route: 064
     Dates: start: 200405, end: 200502
  2. ZOFRAN [Concomitant]
     Indication: NAUSEA
     Dosage: UNK
     Route: 064
  3. MULTIVITAMINS [Concomitant]
     Dosage: UNK
     Route: 064
  4. DILAUDID [Concomitant]
     Indication: HEADACHE
     Dosage: UNK
     Route: 064
     Dates: start: 20041122
  5. METHYLPREDNISOLONE [Concomitant]
     Dosage: UNK
     Route: 064
  6. MORPHINE [Concomitant]
     Indication: HEADACHE
     Dosage: UNK
     Route: 064
  7. PRENATAL VITAMINS [Concomitant]
     Dosage: UNK
     Route: 064
  8. TYLENOL [Concomitant]
     Dosage: UNK
     Route: 064
  9. IBUPROFEN [Concomitant]
     Dosage: UNK
     Route: 064
  10. LORAZEPAM [Concomitant]
     Dosage: UNK
     Route: 064
  11. HYDROCODONE [Concomitant]
     Dosage: UNK
     Route: 064

REACTIONS (11)
  - Foetal exposure during pregnancy [Unknown]
  - Anomalous pulmonary venous connection [Recovered/Resolved]
  - Patent ductus arteriosus [Unknown]
  - Ventricular septal defect [Recovered/Resolved]
  - Atrial septal defect [Recovered/Resolved]
  - Congenital anomaly [Unknown]
  - Post procedural complication [Unknown]
  - Respiratory tract infection [Recovering/Resolving]
  - Croup infectious [Unknown]
  - Ear infection [Recovering/Resolving]
  - Strabismus [Unknown]
